FAERS Safety Report 18315292 (Version 1)
Quarter: 2020Q3

REPORT INFORMATION
  Report Type: Spontaneous
  Country: BR (occurrence: BR)
  Receive Date: 20200926
  Receipt Date: 20200926
  Transmission Date: 20201103
  Serious: Yes (Other)
  Sender: FDA-Public Use
  Company Number: BR-CELLTRION INC.-2019BR019734

PATIENT

DRUGS (3)
  1. REMSIMA [Suspect]
     Active Substance: INFLIXIMAB
     Dosage: UNK
     Route: 065
     Dates: start: 2012, end: 20200608
  2. REMSIMA [Suspect]
     Active Substance: INFLIXIMAB
     Indication: PRODUCT USED FOR UNKNOWN INDICATION
     Dosage: UNK
     Route: 065
     Dates: start: 2016, end: 20190109
  3. REMSIMA [Suspect]
     Active Substance: INFLIXIMAB
     Dosage: UNK
     Route: 065

REACTIONS (11)
  - Thermal burn [Unknown]
  - Injury [Unknown]
  - Pain [Unknown]
  - Upper limb fracture [Unknown]
  - Road traffic accident [Unknown]
  - Intentional dose omission [Unknown]
  - Limb injury [Unknown]
  - Haematoma [Unknown]
  - Inflammation [Unknown]
  - Sensitive skin [Unknown]
  - Ligament sprain [Unknown]

NARRATIVE: CASE EVENT DATE: 20190301
